FAERS Safety Report 23967990 (Version 1)
Quarter: 2024Q2

REPORT INFORMATION
  Report Type: Report from Study
  Country: US (occurrence: US)
  Receive Date: 20240612
  Receipt Date: 20240612
  Transmission Date: 20240716
  Serious: Yes (Life-Threatening, Hospitalization, Disabling, Other)
  Sender: FDA-Public Use
  Company Number: US-002147023-NVSC2022US075079

PATIENT
  Age: 15 Year
  Sex: Female
  Weight: 56.6 kg

DRUGS (11)
  1. ILARIS [Suspect]
     Active Substance: CANAKINUMAB
     Indication: Immunomodulatory therapy
     Dosage: 120 MG
     Route: 065
     Dates: start: 20150129, end: 201604
  2. ILARIS [Suspect]
     Active Substance: CANAKINUMAB
     Indication: Juvenile idiopathic arthritis
     Dosage: 150 MG
     Route: 065
     Dates: start: 20171121, end: 20190401
  3. ILARIS [Suspect]
     Active Substance: CANAKINUMAB
     Dosage: 150 MG
     Route: 065
     Dates: start: 20200320, end: 20201218
  4. ILARIS [Suspect]
     Active Substance: CANAKINUMAB
     Dosage: 200 MG
     Route: 065
     Dates: start: 20201218, end: 20220305
  5. LEFLUNOMIDE [Suspect]
     Active Substance: LEFLUNOMIDE
     Indication: Immunomodulatory therapy
     Dosage: 10 MG
     Route: 065
     Dates: start: 20171121, end: 20220322
  6. LEFLUNOMIDE [Suspect]
     Active Substance: LEFLUNOMIDE
     Indication: Juvenile idiopathic arthritis
  7. METHOTREXATE [Suspect]
     Active Substance: METHOTREXATE
     Indication: Product used for unknown indication
     Dosage: 10 MG
     Route: 065
     Dates: start: 201402, end: 20161228
  8. ZYRTEC [Concomitant]
     Active Substance: CETIRIZINE HYDROCHLORIDE
     Indication: Rash pruritic
     Dosage: 10 MG
     Route: 065
     Dates: start: 20170927
  9. FLOVENT [Concomitant]
     Active Substance: FLUTICASONE PROPIONATE
     Indication: Reversible airways obstruction
     Dosage: 1 UNK, BID (1 PUFF)
     Route: 065
     Dates: start: 20200813
  10. NAPROXEN [Concomitant]
     Active Substance: NAPROXEN
     Indication: Still^s disease
     Dosage: 375 MG
     Route: 065
     Dates: start: 20170321
  11. PREDNISONE [Concomitant]
     Active Substance: PREDNISONE
     Indication: Inflammatory marker decreased
     Dosage: 60 MG, QD
     Route: 065
     Dates: start: 20220401

REACTIONS (34)
  - Hyperferritinaemia [Recovered/Resolved]
  - Infection [Recovered/Resolved]
  - Haemophagocytic lymphohistiocytosis [Recovered/Resolved]
  - Interleukin-2 receptor increased [Recovered/Resolved]
  - Pyrexia [Recovering/Resolving]
  - Cytopenia [Recovering/Resolving]
  - Flushing [Recovering/Resolving]
  - Encephalopathy [Recovering/Resolving]
  - Liver injury [Recovering/Resolving]
  - Norovirus infection [Recovered/Resolved]
  - Groin abscess [Recovering/Resolving]
  - Thrombocytopenia [Not Recovered/Not Resolved]
  - Neutropenia [Unknown]
  - Melaena [Recovered/Resolved]
  - Gallbladder enlargement [Unknown]
  - Pyrexia [Unknown]
  - Pain [Not Recovered/Not Resolved]
  - Abdominal pain [Unknown]
  - Malaise [Unknown]
  - Nausea [Unknown]
  - Fatigue [Unknown]
  - Non-pitting oedema [Recovering/Resolving]
  - Tachycardia [Unknown]
  - Cardiac murmur [Unknown]
  - Hyperammonaemia [Unknown]
  - Rash [Recovering/Resolving]
  - Headache [Not Recovered/Not Resolved]
  - Pain in extremity [Not Recovered/Not Resolved]
  - Hypertension [Unknown]
  - Hypervolaemia [Recovering/Resolving]
  - Erythema [Recovering/Resolving]
  - Tachypnoea [Recovered/Resolved]
  - Irritability [Unknown]
  - Product use in unapproved indication [Unknown]

NARRATIVE: CASE EVENT DATE: 20220317
